FAERS Safety Report 17070000 (Version 1)
Quarter: 2019Q4

REPORT INFORMATION
  Report Type: Spontaneous
  Country: US (occurrence: US)
  Receive Date: 20191125
  Receipt Date: 20191125
  Transmission Date: 20200122
  Serious: No
  Sender: FDA-Public Use
  Company Number: US-HIKMA PHARMACEUTICALS USA INC.-US-H14001-19-04859

PATIENT
  Age: 83 Year
  Sex: Male

DRUGS (1)
  1. IPRATROPIUM BROMIDE. [Suspect]
     Active Substance: IPRATROPIUM BROMIDE
     Indication: PRODUCT USED FOR UNKNOWN INDICATION
     Dosage: 2 SPRAYS EVERY TWELVE HOURS
     Route: 045
     Dates: start: 20190827

REACTIONS (2)
  - Exposure via skin contact [Unknown]
  - Product dose omission [Unknown]

NARRATIVE: CASE EVENT DATE: 20190827
